FAERS Safety Report 6070545-X (Version None)
Quarter: 2009Q1

REPORT INFORMATION
  Report Type: 
  Country: None (occurrence: None)
  Receive Date: 20090209
  Receipt Date: 20090130
  Transmission Date: 20090719
  Serious: Yes (Hospitalization, Other)
  Sender: FDA-Public Use
  Company Number: JP-ABBOTT-09P-087-0501759-00

PATIENT
  Age: 77 Year
  Sex: Male

DRUGS (5)
  1. LEUPROLIDE ACETATE [Suspect]
     Indication: PROSTATE CANCER STAGE IV
     Route: 058
     Dates: start: 20060821, end: 20070802
  2. LEUPROLIDE ACETATE [Suspect]
     Dates: start: 20060427, end: 20060724
  3. BLOPRESS [Concomitant]
     Indication: HYPERTENSION
     Route: 048
  4. CASODEX [Concomitant]
     Indication: PROSTATE CANCER STAGE IV
     Route: 048
     Dates: start: 20060427, end: 20070625
  5. CALBLOCK [Concomitant]
     Indication: HYPERTENSION
     Route: 048

REACTIONS (2)
  - HYPERKALAEMIA [None]
  - PROSTATE CANCER [None]
